FAERS Safety Report 9731628 (Version 1)
Quarter: 2013Q4

REPORT INFORMATION
  Report Type: Report from Study
  Country: US (occurrence: US)
  Receive Date: 20131204
  Receipt Date: 20131204
  Transmission Date: 20140711
  Serious: Yes (Death, Hospitalization)
  Sender: FDA-Public Use
  Company Number: US-ROCHE-1311741

PATIENT
  Age: 66 Year
  Sex: Male

DRUGS (2)
  1. RANIBIZUMAB [Suspect]
     Indication: RETINAL DISORDER
     Dosage: 6 AMPOULES (3 IN EACH EYE)
     Route: 050
  2. ONBRIZE [Suspect]
     Indication: CHOKING
     Route: 065

REACTIONS (8)
  - Cardiac death [Fatal]
  - Myocardial infarction [Recovering/Resolving]
  - Overdose [Unknown]
  - Depression [Unknown]
  - Aggression [Unknown]
  - Nervousness [Unknown]
  - Drug ineffective [Unknown]
  - Abnormal behaviour [Unknown]
